FAERS Safety Report 4370142-8 (Version None)
Quarter: 2004Q2

REPORT INFORMATION
  Report Type: 
  Country: None (occurrence: None)
  Receive Date: 20040603
  Receipt Date: 20040301
  Transmission Date: 20050107
  Serious: No
  Sender: FDA-Public Use
  Company Number: US-BRISTOL-MYERS SQUIBB COMPANY-12568002

PATIENT
  Age: 9 Year
  Sex: Female

DRUGS (2)
  1. ABILIFY [Suspect]
     Indication: BIPOLAR DISORDER
     Dosage: JUL-2003 DOSE UNKNOWN; INCREASED TO 15 MG (DATE NOT SPECIFED).
     Dates: start: 20030701
  2. ZOLOFT [Concomitant]

REACTIONS (1)
  - WEIGHT INCREASED [None]
